FAERS Safety Report 6632302-2 (Version None)
Quarter: 2010Q1

REPORT INFORMATION
  Report Type: 
  Country: None (occurrence: None)
  Receive Date: 20100312
  Receipt Date: 20100302
  Transmission Date: 20100710
  Serious: Yes (Hospitalization)
  Sender: FDA-Public Use
  Company Number: B0504795B

PATIENT
  Sex: Male
  Weight: 13.8 kg

DRUGS (5)
  1. COMBIVIR [Suspect]
     Indication: HIV INFECTION
     Route: 048
     Dates: start: 20071119, end: 20091215
  2. ABACAVIR [Suspect]
     Indication: HIV INFECTION
     Dosage: 150MG TWICE PER DAY
     Route: 048
     Dates: start: 20071119
  3. NEVIRAPINE [Suspect]
     Indication: HIV INFECTION
     Dosage: 100ML PER DAY
     Dates: start: 20071119, end: 20071203
  4. COTRIMOXAZOLE [Suspect]
  5. MULTI-VITAMINS [Concomitant]

REACTIONS (10)
  - ANAEMIA [None]
  - ASTHENIA [None]
  - CARDIAC FAILURE [None]
  - DRUG TOXICITY [None]
  - JAUNDICE [None]
  - MALARIA [None]
  - MUCOSAL DISCOLOURATION [None]
  - PALPITATIONS [None]
  - PYREXIA [None]
  - RASH PAPULAR [None]
